FAERS Safety Report 5415931-3 (Version None)
Quarter: 2007Q3

REPORT INFORMATION
  Report Type: 
  Country: None (occurrence: None)
  Receive Date: 20070815
  Receipt Date: 20070803
  Transmission Date: 20080115
  Serious: Yes (Other)
  Sender: FDA-Public Use
  Company Number: US-PFIZER INC-2007065640

PATIENT
  Sex: Female

DRUGS (2)
  1. LYRICA [Suspect]
     Indication: FIBROMYALGIA
     Route: 048
  2. PHENYLTOLOXAMINE [Concomitant]

REACTIONS (6)
  - BALANCE DISORDER [None]
  - DISTURBANCE IN ATTENTION [None]
  - FEELING DRUNK [None]
  - IMPAIRED DRIVING ABILITY [None]
  - IMPAIRED WORK ABILITY [None]
  - SLUGGISHNESS [None]
